FAERS Safety Report 13899181 (Version 1)
Quarter: 2017Q3

REPORT INFORMATION
  Report Type: Spontaneous
  Country: US (occurrence: US)
  Receive Date: 20170823
  Receipt Date: 20170823
  Transmission Date: 20171127
  Serious: Yes (Other)
  Sender: FDA-Public Use
  Company Number: None

PATIENT
  Age: 69 Year
  Sex: Female
  Weight: 69.3 kg

DRUGS (11)
  1. PREDNISONE, 10 MG [Suspect]
     Active Substance: PREDNISONE
     Indication: INTERVERTEBRAL DISC PROTRUSION
     Dosage: ?          QUANTITY:50 TABLET(S);?
     Route: 048
     Dates: start: 20170815, end: 20170822
  2. OMEPREZOLE [Concomitant]
     Active Substance: OMEPRAZOLE
  3. CRANACTIN [Concomitant]
     Active Substance: DIETARY SUPPLEMENT
  4. PREDNISONE, 10 MG [Suspect]
     Active Substance: PREDNISONE
     Indication: BACK PAIN
     Dosage: ?          QUANTITY:50 TABLET(S);?
     Route: 048
     Dates: start: 20170815, end: 20170822
  5. LEVOTHYROXINE. [Concomitant]
     Active Substance: LEVOTHYROXINE
  6. BAYER ASPRIN [Concomitant]
  7. ENDUUR-ACIN BIOTIN [Concomitant]
  8. RED YEAST RICE [Concomitant]
     Active Substance: DIETARY SUPPLEMENT
  9. CALCIUM + D3 [Concomitant]
     Active Substance: CALCIUM\CHOLECALCIFEROL
  10. TURMERIC [Concomitant]
     Active Substance: HERBALS\TURMERIC
  11. OMEGA GOLD [Concomitant]

REACTIONS (21)
  - Feeling jittery [None]
  - Chills [None]
  - Hypoaesthesia [None]
  - Decreased appetite [None]
  - Self-induced vomiting [None]
  - Dysphagia [None]
  - Oral discomfort [None]
  - Throat irritation [None]
  - Sleep disorder [None]
  - Abnormal dreams [None]
  - Paraesthesia [None]
  - Weight increased [None]
  - Dizziness [None]
  - Nausea [None]
  - Pyrexia [None]
  - Abdominal discomfort [None]
  - Agitation [None]
  - Odynophagia [None]
  - Anxiety [None]
  - Feeling abnormal [None]
  - Mental disorder [None]

NARRATIVE: CASE EVENT DATE: 20170822
